FAERS Safety Report 10666714 (Version 1)
Quarter: 2014Q4

REPORT INFORMATION
  Report Type: Spontaneous
  Country: US (occurrence: US)
  Receive Date: 20141222
  Receipt Date: 20141222
  Transmission Date: 20150529
  Serious: Yes (Hospitalization, Other)
  Sender: FDA-Public Use
  Company Number: US-AMGEN-USASP2014098510

PATIENT
  Age: 70 Year
  Sex: Female

DRUGS (2)
  1. PREDNISONE. [Concomitant]
     Active Substance: PREDNISONE
     Dosage: UNK
  2. ENBREL [Suspect]
     Active Substance: ETANERCEPT
     Indication: RHEUMATOID ARTHRITIS
     Dosage: 50 MG, QWK
     Route: 065
     Dates: start: 20080326

REACTIONS (9)
  - Fall [Recovered/Resolved]
  - Therapeutic response decreased [Recovered/Resolved]
  - Traumatic liver injury [Recovered/Resolved]
  - Pulmonary fibrosis [Not Recovered/Not Resolved]
  - Concussion [Recovered/Resolved]
  - Haemoglobin decreased [Recovered/Resolved]
  - Contusion [Recovered/Resolved]
  - Abdominal pain [Recovered/Resolved]
  - Depression [Not Recovered/Not Resolved]

NARRATIVE: CASE EVENT DATE: 2014
